FAERS Safety Report 4872718-8 (Version None)
Quarter: 2006Q1

REPORT INFORMATION
  Report Type: 
  Country: None (occurrence: None)
  Receive Date: 20060105
  Receipt Date: 20050920
  Transmission Date: 20060701
  Serious: Yes (Hospitalization)
  Sender: FDA-Public Use
  Company Number: GBWYE992420SEP05

PATIENT
  Sex: Female

DRUGS (11)
  1. ENBREL [Suspect]
     Indication: RHEUMATOID ARTHRITIS
     Dosage: UNKNOWN
     Route: 058
     Dates: start: 20040623, end: 20050919
  2. CELECOXIB [Concomitant]
  3. LACTULOSE [Concomitant]
  4. PROCTOSEDYL [Concomitant]
  5. METHOTREXATE [Concomitant]
     Route: 065
     Dates: start: 19960101
  6. PREDNISOLONE [Concomitant]
     Route: 065
     Dates: start: 20010101
  7. SIMVASTATIN [Concomitant]
     Route: 065
  8. ATENOLOL [Concomitant]
     Route: 065
     Dates: start: 20010101
  9. FELODIPINE [Concomitant]
     Route: 065
     Dates: start: 20010101
  10. WARFARIN [Concomitant]
     Route: 065
     Dates: start: 20041101
  11. ALENDRONATE SODIUM [Concomitant]

REACTIONS (1)
  - BREAST CANCER STAGE III [None]
